FAERS Safety Report 10094023 (Version 1)
Quarter: 2014Q2

REPORT INFORMATION
  Report Type: Spontaneous
  Country: MX (occurrence: MX)
  Receive Date: 20140422
  Receipt Date: 20140422
  Transmission Date: 20141212
  Serious: Yes (Hospitalization, Other)
  Sender: FDA-Public Use
  Company Number: MX-ROCHE-1384068

PATIENT
  Age: 2 Year
  Sex: Male

DRUGS (12)
  1. TRETINOIN [Suspect]
     Indication: ACUTE PROMYELOCYTIC LEUKAEMIA
     Route: 065
  2. TRETINOIN [Suspect]
     Route: 065
  3. DAUNORUBICIN [Suspect]
     Indication: ACUTE PROMYELOCYTIC LEUKAEMIA
     Route: 065
  4. DAUNORUBICIN [Suspect]
     Route: 065
  5. DAUNORUBICIN [Suspect]
     Route: 065
  6. DEXAMETHASONE [Suspect]
     Indication: ACUTE PROMYELOCYTIC LEUKAEMIA
     Dosage: 2.5 MG/M2 MILLIGRAM(S)/SQ. METER /12 HOUR.
     Route: 065
  7. CYTARABINE [Suspect]
     Indication: ACUTE PROMYELOCYTIC LEUKAEMIA
     Route: 065
  8. CYTARABINE [Suspect]
     Dosage: 150 MG/M2 MILLIGRAM(S)/SQ. METER /8 HOUR
     Route: 065
  9. MITOXANTRONE [Suspect]
     Indication: ACUTE PROMYELOCYTIC LEUKAEMIA
     Route: 065
  10. MITOXANTRONE [Suspect]
     Route: 065
  11. METHOTREXATE [Suspect]
     Indication: ACUTE PROMYELOCYTIC LEUKAEMIA
     Route: 065
  12. MERCAPTOPURINE [Suspect]
     Indication: ACUTE PROMYELOCYTIC LEUKAEMIA
     Route: 065

REACTIONS (2)
  - Headache [Unknown]
  - Febrile neutropenia [Unknown]
